FAERS Safety Report 17170006 (Version 2)
Quarter: 2020Q1

REPORT INFORMATION
  Report Type: Spontaneous
  Country: US (occurrence: US)
  Receive Date: 20191218
  Receipt Date: 20200224
  Transmission Date: 20200409
  Serious: No
  Sender: FDA-Public Use
  Company Number: US-PFIZER INC-2019523016

PATIENT
  Age: 64 Year
  Sex: Male
  Weight: 108 kg

DRUGS (2)
  1. IBRANCE [Suspect]
     Active Substance: PALBOCICLIB
     Indication: OESOPHAGEAL CARCINOMA
     Dosage: 125 MG, 1X/DAY
     Route: 048
     Dates: start: 20191213
  2. IBRANCE [Suspect]
     Active Substance: PALBOCICLIB
     Indication: THROAT CANCER
     Dosage: UNK (125 1 DAY)
     Dates: start: 20191215

REACTIONS (3)
  - Off label use [Unknown]
  - Dysphagia [Unknown]
  - Product use in unapproved indication [Unknown]

NARRATIVE: CASE EVENT DATE: 20191213
